FAERS Safety Report 9698788 (Version 1)
Quarter: 2013Q4

REPORT INFORMATION
  Report Type: Spontaneous
  Country: FR (occurrence: FR)
  Receive Date: 20131120
  Receipt Date: 20131120
  Transmission Date: 20140711
  Serious: Yes (Hospitalization)
  Sender: FDA-Public Use
  Company Number: FR-PFIZER INC-2013330248

PATIENT
  Age: 47 Year
  Sex: Male

DRUGS (5)
  1. RAMIPRIL [Suspect]
     Dosage: 2.5 MG, 2X/DAY
     Route: 048
  2. ALLOPURINOL [Suspect]
     Dosage: 200 MG, 1X/DAY
     Route: 048
  3. LASILIX FAIBLE [Suspect]
     Dosage: 20 MG, 1X/DAY
     Route: 048
  4. TRACLEER [Suspect]
     Indication: PULMONARY ARTERIAL HYPERTENSION
     Dosage: 125 MG, 2X/DAY
     Route: 048
     Dates: start: 201212
  5. ZINC ACETATE [Concomitant]
     Dosage: UNK
     Dates: start: 201212

REACTIONS (4)
  - Leukopenia [Not Recovered/Not Resolved]
  - Neutropenia [Recovered/Resolved]
  - Thrombocytopenia [Not Recovered/Not Resolved]
  - Anaemia [Not Recovered/Not Resolved]
